FAERS Safety Report 14404905 (Version 3)
Quarter: 2018Q3

REPORT INFORMATION
  Report Type: Report from Study
  Country: None (occurrence: US)
  Receive Date: 20180118
  Receipt Date: 20180909
  Transmission Date: 20181010
  Serious: Yes (Other)
  Sender: FDA-Public Use
  Company Number: US-ABBVIE-17K-163-2203890-00

PATIENT
  Age: 50 Year
  Sex: Female

DRUGS (5)
  1. LORAZEPAM. [Concomitant]
     Active Substance: LORAZEPAM
     Indication: RESTLESS LEGS SYNDROME
  2. PREDNISONE. [Concomitant]
     Active Substance: PREDNISONE
     Indication: PRODUCT USED FOR UNKNOWN INDICATION
  3. REMICADE [Concomitant]
     Active Substance: INFLIXIMAB
     Indication: RESTLESS LEGS SYNDROME
  4. HUMIRA [Suspect]
     Active Substance: ADALIMUMAB
     Indication: CROHN^S DISEASE
     Route: 058
     Dates: start: 20170929
  5. GABAPENTIN. [Concomitant]
     Active Substance: GABAPENTIN
     Indication: RESTLESS LEGS SYNDROME

REACTIONS (21)
  - Elbow operation [Unknown]
  - Pyloric stenosis [Unknown]
  - Arthralgia [Unknown]
  - Impaired healing [Unknown]
  - Oropharyngeal candidiasis [Unknown]
  - Gastrointestinal surgery [Unknown]
  - Ulcer haemorrhage [Unknown]
  - Impaired gastric emptying [Unknown]
  - Flatulence [Unknown]
  - Oesophageal candidiasis [Unknown]
  - Nasal septum ulceration [Unknown]
  - Weight increased [Unknown]
  - Post procedural infection [Unknown]
  - Procedural pain [Unknown]
  - Rotator cuff syndrome [Recovered/Resolved with Sequelae]
  - Exostosis [Recovered/Resolved]
  - Anaemia [Unknown]
  - Bursitis [Recovering/Resolving]
  - Post procedural discomfort [Unknown]
  - Tendon rupture [Unknown]
  - Tendonitis [Recovering/Resolving]

NARRATIVE: CASE EVENT DATE: 20171210
